FAERS Safety Report 5162047-X (Version None)
Quarter: 2006Q4

REPORT INFORMATION
  Report Type: 
  Country: None (occurrence: None)
  Receive Date: 20061121
  Receipt Date: 20061107
  Transmission Date: 20070319
  Serious: Yes (Other)
  Sender: FDA-Public Use
  Company Number: DSA_28871_2006

PATIENT
  Age: 47 Year
  Sex: Female

DRUGS (1)
  1. TAVOR /00273201/ [Suspect]
     Dosage: DF PO
     Route: 048
     Dates: end: 20061001

REACTIONS (6)
  - ABDOMINAL PAIN [None]
  - DRUG ABUSER [None]
  - DRUG WITHDRAWAL SYNDROME [None]
  - HEADACHE [None]
  - MUSCLE DISORDER [None]
  - PANIC ATTACK [None]
